FAERS Safety Report 22297446 (Version 3)
Quarter: 2023Q2

REPORT INFORMATION
  Report Type: Spontaneous
  Country: US (occurrence: US)
  Receive Date: 20230509
  Receipt Date: 20230524
  Transmission Date: 20230721
  Serious: Yes (Other)
  Sender: FDA-Public Use
  Company Number: US-ORPHANEU-2023002741

PATIENT

DRUGS (5)
  1. CARBAGLU [Suspect]
     Active Substance: CARGLUMIC ACID
     Indication: Propionic acidaemia
     Dosage: 20 MILLIGRAM/KILOGRAM
     Dates: start: 20221117, end: 202211
  2. CARBAGLU [Suspect]
     Active Substance: CARGLUMIC ACID
     Dosage: DOSE INCREASED (STEP WISE FASHION) (FINAL DOSE 60 MILLIGRAM/KILOGRAM)
     Dates: start: 202211
  3. CARBAGLU [Suspect]
     Active Substance: CARGLUMIC ACID
     Dosage: 60 MILLIGRAM/KILOGRAM
  4. INSULIN NOS [Concomitant]
     Active Substance: INSULIN NOS
     Indication: Type 1 diabetes mellitus
     Dosage: UNK
  5. INSULIN NOS [Concomitant]
     Active Substance: INSULIN NOS
     Dosage: DOSE INCREASED

REACTIONS (1)
  - Hyperglycaemia [Recovered/Resolved]

NARRATIVE: CASE EVENT DATE: 20220101
